FAERS Safety Report 16020834 (Version 1)
Quarter: 2019Q1

REPORT INFORMATION
  Report Type: Spontaneous
  Country: US (occurrence: US)
  Receive Date: 20190301
  Receipt Date: 20190301
  Transmission Date: 20190418
  Serious: Yes (Other)
  Sender: FDA-Public Use
  Company Number: US-ABBVIE-19S-163-2682835-00

PATIENT
  Sex: Male

DRUGS (3)
  1. DEPAKENE [Suspect]
     Active Substance: VALPROIC ACID
     Indication: SEIZURE
     Route: 065
     Dates: start: 1990, end: 1996
  2. DEPAKENE [Suspect]
     Active Substance: VALPROIC ACID
     Route: 065
     Dates: start: 1996, end: 1996
  3. VALPROIC ACID. [Suspect]
     Active Substance: VALPROIC ACID
     Indication: SEIZURE
     Route: 065
     Dates: start: 1996, end: 1996

REACTIONS (2)
  - Spinal operation [Recovered/Resolved]
  - Seizure [Recovered/Resolved]

NARRATIVE: CASE EVENT DATE: 1996
